FAERS Safety Report 7682856-2 (Version None)
Quarter: 2011Q3

REPORT INFORMATION
  Report Type: 
  Country: None (occurrence: None)
  Receive Date: 20110815
  Receipt Date: 20110801
  Transmission Date: 20111222
  Serious: Yes (Other)
  Sender: FDA-Public Use
  Company Number: JP-ROCHE-776332

PATIENT
  Age: 74 Year
  Sex: Male

DRUGS (3)
  1. CYTARABINE [Concomitant]
     Route: 041
  2. VESANOID [Suspect]
     Indication: ACUTE PROMYELOCYTIC LEUKAEMIA
     Route: 048
  3. IDAMYCIN [Concomitant]
     Route: 041

REACTIONS (2)
  - HISTIOCYTOSIS HAEMATOPHAGIC [None]
  - ACUTE PROMYELOCYTIC LEUKAEMIA DIFFERENTIATION SYNDROME [None]
